FAERS Safety Report 7249855 (Version 6)
Quarter: 2014Q4

REPORT INFORMATION
  Report Type: Report from Study
  Country: US (occurrence: US)
  Receive Date: 20100120
  Receipt Date: 20141012
  Transmission Date: 20150529
  Serious: Yes (Hospitalization, Other)
  Sender: FDA-Public Use
  Company Number: PHEH2009US17312

PATIENT
  Age: 34 Year
  Sex: Male

DRUGS (1)
  1. EXJADE [Suspect]
     Active Substance: DEFERASIROX
     Indication: SICKLE CELL ANAEMIA
     Dosage: 1500 MG, QD
     Route: 048

REACTIONS (5)
  - Sepsis [Unknown]
  - Pneumonia [Recovered/Resolved]
  - Pain [Unknown]
  - Pleural effusion [Recovered/Resolved]
  - Sickle cell anaemia with crisis [Unknown]

NARRATIVE: CASE EVENT DATE: 20100111
